FAERS Safety Report 6486594-3 (Version None)
Quarter: 2009Q4

REPORT INFORMATION
  Report Type: 
  Country: None (occurrence: None)
  Receive Date: 20091210
  Receipt Date: 20091204
  Transmission Date: 20100525
  Serious: Yes (Hospitalization, Other)
  Sender: FDA-Public Use
  Company Number: US-BAYER-200939370NA

PATIENT
  Age: 59 Year
  Sex: Female

DRUGS (1)
  1. BETASERON [Suspect]
     Indication: MULTIPLE SCLEROSIS
     Route: 058
     Dates: start: 20080101

REACTIONS (4)
  - HYPOAESTHESIA [None]
  - PAIN IN EXTREMITY [None]
  - SPINAL FRACTURE [None]
  - SURGERY [None]
